FAERS Safety Report 19900601 (Version 1)
Quarter: 2021Q3

REPORT INFORMATION
  Report Type: Spontaneous
  Country: US (occurrence: US)
  Receive Date: 20210930
  Receipt Date: 20210930
  Transmission Date: 20211014
  Serious: No
  Sender: FDA-Public Use
  Company Number: US-LUPIN PHARMACEUTICALS INC.-2021-18289

PATIENT
  Age: 62 Year
  Sex: Male

DRUGS (12)
  1. AZITHROMYCIN ANHYDROUS. [Suspect]
     Active Substance: AZITHROMYCIN ANHYDROUS
     Dosage: 500 MILLIGRAM, QD (FOR 8 DAYS)
     Route: 042
  2. NOREPINEPHRINE. [Concomitant]
     Active Substance: NOREPINEPHRINE
     Indication: SEPTIC SHOCK
     Dosage: UNK
     Route: 042
  3. AZITHROMYCIN ANHYDROUS. [Suspect]
     Active Substance: AZITHROMYCIN ANHYDROUS
     Indication: COVID-19 PNEUMONIA
     Dosage: UNK
     Route: 042
  4. VANCOMYCIN [Suspect]
     Active Substance: VANCOMYCIN
     Indication: COVID-19 PNEUMONIA
     Dosage: UNK
     Route: 042
  5. CEFTRIAXONE. [Suspect]
     Active Substance: CEFTRIAXONE
     Dosage: 2 GRAM, QD (FOR 8 DAYS.)
     Route: 042
  6. CEFEPIME [Suspect]
     Active Substance: CEFEPIME HYDROCHLORIDE
     Indication: COVID-19 PNEUMONIA
     Dosage: UNK
     Route: 042
  7. VITAMIN C [Concomitant]
     Active Substance: ASCORBIC ACID
     Indication: VITAMIN SUPPLEMENTATION
     Dosage: UNK
     Route: 065
  8. ENOXAPARIN [Concomitant]
     Active Substance: ENOXAPARIN
     Indication: THROMBOSIS PROPHYLAXIS
     Dosage: UNK
     Route: 058
  9. AZITHROMYCIN ANHYDROUS. [Suspect]
     Active Substance: AZITHROMYCIN ANHYDROUS
     Dosage: 500 MILLIGRAM, QD (FOR 3 DAYS)
     Route: 042
  10. CEFDINIR. [Suspect]
     Active Substance: CEFDINIR
     Indication: COVID-19 PNEUMONIA
     Dosage: 300 MILLIGRAM, BID (FOR 5 DAYS)
     Route: 065
  11. CHLOROQUINE PHOSPHATE. [Suspect]
     Active Substance: CHLOROQUINE PHOSPHATE
     Indication: COVID-19 PNEUMONIA
     Dosage: 500 MILLIGRAM, BID
     Route: 065
  12. CEFTRIAXONE. [Suspect]
     Active Substance: CEFTRIAXONE
     Indication: COVID-19 PNEUMONIA
     Dosage: UNK
     Route: 042

REACTIONS (1)
  - Off label use [Unknown]
